FAERS Safety Report 15720955 (Version 1)
Quarter: 2018Q4

REPORT INFORMATION
  Report Type: Report from Study
  Country: ES (occurrence: ES)
  Receive Date: 20181214
  Receipt Date: 20181214
  Transmission Date: 20190205
  Serious: Yes (Hospitalization)
  Sender: FDA-Public Use
  Company Number: ES-TEVA-2018-ES-985627

PATIENT
  Age: 91 Year
  Sex: Female

DRUGS (12)
  1. PROPRANOLOL [Concomitant]
     Active Substance: PROPRANOLOL HYDROCHLORIDE
     Indication: HYPERTENSION
     Dosage: 20 MILLIGRAM DAILY;
     Route: 048
     Dates: start: 20141204
  2. LUMIGAN 0,3 MG/ML COLIRIO EN SOLUCION EN ENVASE UNIDOSIS , 30 ENVASES [Concomitant]
     Indication: GLAUCOMA
     Route: 047
     Dates: start: 2013
  3. ADIRO 100 MG COMPRIMIDOS GASTRORRESISTENTES EFG , 30 COMPRIMIDOS [Concomitant]
     Active Substance: ASPIRIN
     Dosage: 100 MILLIGRAM DAILY;
     Route: 048
     Dates: start: 2009
  4. RIVOTRIL 0,5 MG COMPRIMIDOS , 60 COMPRIMIDOS [Concomitant]
     Indication: INSOMNIA
     Dosage: .5 MILLIGRAM DAILY;
     Route: 048
     Dates: start: 201309
  5. PARACETAMOL [Concomitant]
     Active Substance: ACETAMINOPHEN
     Indication: PROPHYLAXIS
     Dosage: ON DEMAND | | FREQUENCY UNIT: 0 WHEN NECESSARY
     Route: 048
     Dates: start: 2012
  6. MIFLONIDE 400 MICROGRAMOS POLVO PARA INHALACION (CAPSULA DURA), 1 INHA [Concomitant]
     Indication: CHRONIC OBSTRUCTIVE PULMONARY DISEASE
     Dosage: 800 MICROGRAM DAILY;
     Route: 055
     Dates: start: 201412
  7. NOLOTIL 575 MG CAPSULAS DURAS, 20 C?PSULAS [Concomitant]
     Active Substance: METAMIZOLE MAGNESIUM
     Indication: PAIN
     Dosage: ON DEMAND | | FREQUENCY UNIT: 0 WHEN NECESSARY
     Route: 048
     Dates: start: 201406
  8. ALOPURINOL [Suspect]
     Active Substance: ALLOPURINOL
     Indication: HYPERURICAEMIA
     Dosage: 50 MILLIGRAM DAILY; 1/2 CP/24H X 1 MONTH FOLLOWED BY 1 CP DAY
     Route: 048
     Dates: start: 20150527, end: 20150628
  9. OMEPRAZOL [Concomitant]
     Active Substance: OMEPRAZOLE
     Indication: PROPHYLAXIS
     Dosage: 20 MILLIGRAM DAILY;
     Route: 048
     Dates: start: 201409
  10. FUROSEMIDA [Concomitant]
     Active Substance: FUROSEMIDE
     Indication: HYPERTENSION
     Dosage: 40 MILLIGRAM DAILY;
     Route: 048
     Dates: start: 20150610
  11. FORADIL AEROLIZER 12 MICROGRAMOS POLVO PARA INHALACI?N (C?PSULA DURA), [Concomitant]
     Indication: CHRONIC OBSTRUCTIVE PULMONARY DISEASE
     Route: 055
     Dates: start: 2012
  12. TRANKIMAZIN 0,50 MG COMPRIMIDOS , 30 COMPRIMIDOS [Concomitant]
     Active Substance: ALPRAZOLAM
     Indication: INSOMNIA
     Dosage: 1 MILLIGRAM DAILY;
     Route: 048
     Dates: start: 201309

REACTIONS (1)
  - Drug reaction with eosinophilia and systemic symptoms [Recovered/Resolved]

NARRATIVE: CASE EVENT DATE: 20150627
